FAERS Safety Report 18651836 (Version 1)
Quarter: 2020Q4

REPORT INFORMATION
  Report Type: Spontaneous
  Country: US (occurrence: US)
  Receive Date: 20201223
  Receipt Date: 20201223
  Transmission Date: 20210114
  Serious: No
  Sender: FDA-Public Use
  Company Number: US-009507513-2011USA016710

PATIENT
  Age: 42 Year
  Sex: Male

DRUGS (3)
  1. DECADRON [Suspect]
     Active Substance: DEXAMETHASONE
     Indication: EVIDENCE BASED TREATMENT
     Dosage: UNK
     Route: 048
  2. FLUCONAZOLE. [Concomitant]
     Active Substance: FLUCONAZOLE
     Indication: EVIDENCE BASED TREATMENT
     Dosage: UNK
  3. ANTIMICROBIAL (UNSPECIFIED) [Concomitant]
     Active Substance: UNSPECIFIED INGREDIENT
     Indication: EVIDENCE BASED TREATMENT
     Dosage: UNK

REACTIONS (1)
  - Off label use [Unknown]
